FAERS Safety Report 12326302 (Version 1)
Quarter: 2016Q2

REPORT INFORMATION
  Report Type: Spontaneous
  Country: US (occurrence: US)
  Receive Date: 20160503
  Receipt Date: 20160503
  Transmission Date: 20160815
  Serious: No
  Sender: FDA-Public Use
  Company Number: US-BAYER-2016-078928

PATIENT
  Age: 82 Year
  Sex: Female
  Weight: 108.84 kg

DRUGS (1)
  1. MIRALAX [Suspect]
     Active Substance: POLYETHYLENE GLYCOL 3350
     Indication: CHANGE OF BOWEL HABIT
     Dosage: UNK UNK, QD
     Route: 048
     Dates: start: 201312

REACTIONS (1)
  - Product use issue [None]
